FAERS Safety Report 7855151-6 (Version None)
Quarter: 2011Q4

REPORT INFORMATION
  Report Type: 
  Country: None (occurrence: None)
  Receive Date: 20111026
  Receipt Date: 20111013
  Transmission Date: 20120403
  Serious: Yes (Other)
  Sender: FDA-Public Use
  Company Number: RS-WATSON-2011-17228

PATIENT
  Age: 16 Year
  Sex: Female

DRUGS (2)
  1. DAPSONE [Suspect]
     Indication: PEMPHIGUS
  2. PREDNISONE [Suspect]
     Indication: PEMPHIGUS
     Dosage: 500 MG DAILY

REACTIONS (3)
  - URINARY TRACT INFECTION [None]
  - MENSTRUATION IRREGULAR [None]
  - HAEMOLYSIS [None]
